FAERS Safety Report 22116025 (Version 1)
Quarter: 2023Q1

REPORT INFORMATION
  Report Type: Spontaneous
  Country: US (occurrence: US)
  Receive Date: 20230320
  Receipt Date: 20230320
  Transmission Date: 20230418
  Serious: No
  Sender: FDA-Public Use
  Company Number: US-PFIZER INC-202300114744

PATIENT
  Age: 65 Year
  Sex: Male

DRUGS (3)
  1. BOSULIF [Suspect]
     Active Substance: BOSUTINIB MONOHYDRATE
     Dosage: 400 MG, 1X/DAY
     Route: 048
     Dates: start: 20230227
  2. SPRYCEL [Concomitant]
     Active Substance: DASATINIB
     Dosage: 100 MG, 1X/DAY
     Route: 048
     Dates: start: 20160204
  3. GLEEVEC [Concomitant]
     Active Substance: IMATINIB MESYLATE
     Dosage: 600 MG, DAILY (100MG ORAL.TAKE 2 TABLETS ONCE DAILY (TAKE ALONG WITH ONE 400 MG TABLET FOR TOTAL DAI

REACTIONS (2)
  - Urticaria [Not Recovered/Not Resolved]
  - Depressed mood [Not Recovered/Not Resolved]
